FAERS Safety Report 19899630 (Version 2)
Quarter: 2021Q4

REPORT INFORMATION
  Report Type: Spontaneous
  Country: IN (occurrence: IN)
  Receive Date: 20210930
  Receipt Date: 20211006
  Transmission Date: 20220304
  Serious: Yes (Life-Threatening, Hospitalization, Other)
  Sender: FDA-Public Use
  Company Number: None

PATIENT
  Age: 58 Year
  Sex: Male

DRUGS (12)
  1. AMANTADINE HYDROCHLORIDE [Suspect]
     Active Substance: AMANTADINE HYDROCHLORIDE
     Indication: Gait disturbance
     Dosage: UNK
     Route: 065
  2. AMANTADINE HYDROCHLORIDE [Suspect]
     Active Substance: AMANTADINE HYDROCHLORIDE
     Indication: Tremor
  3. CLONAZEPAM [Suspect]
     Active Substance: CLONAZEPAM
     Indication: Tremor
     Dosage: UNK
     Route: 065
  4. CLONAZEPAM [Suspect]
     Active Substance: CLONAZEPAM
     Indication: Gait disturbance
  5. AMITRIPTYLINE [Suspect]
     Active Substance: AMITRIPTYLINE
     Indication: Gait disturbance
     Dosage: UNK
     Route: 065
  6. AMITRIPTYLINE [Suspect]
     Active Substance: AMITRIPTYLINE
     Indication: Tremor
  7. OLANZAPINE [Suspect]
     Active Substance: OLANZAPINE
     Indication: Tremor
     Dosage: UNK
     Route: 065
  8. OLANZAPINE [Suspect]
     Active Substance: OLANZAPINE
     Indication: Restlessness
  9. RASAGILINE [Suspect]
     Active Substance: RASAGILINE
     Indication: Tremor
     Dosage: UNK
     Route: 065
  10. RASAGILINE [Suspect]
     Active Substance: RASAGILINE
     Indication: Gait disturbance
  11. ESCITALOPRAM [Suspect]
     Active Substance: ESCITALOPRAM OXALATE
     Indication: Tremor
     Dosage: UNK
     Route: 065
  12. ESCITALOPRAM [Suspect]
     Active Substance: ESCITALOPRAM OXALATE
     Indication: Gait disturbance

REACTIONS (2)
  - Serotonin syndrome [Recovered/Resolved]
  - Off label use [Unknown]
